FAERS Safety Report 18296205 (Version 1)
Quarter: 2020Q3

REPORT INFORMATION
  Report Type: Spontaneous
  Country: US (occurrence: US)
  Receive Date: 20200922
  Receipt Date: 20200922
  Transmission Date: 20201103
  Serious: Yes (Hospitalization)
  Sender: FDA-Public Use
  Company Number: US-FARMAPROD-202008-1051

PATIENT
  Age: 86 Year
  Sex: Male
  Weight: 66.2 kg

DRUGS (6)
  1. OFLOXACIN. [Concomitant]
     Active Substance: OFLOXACIN
     Dates: start: 20200807
  2. REFRESH [Concomitant]
     Active Substance: UNSPECIFIED INGREDIENT
     Dates: start: 2019
  3. MURO [Concomitant]
     Dates: start: 20200731
  4. SOOTHE [Concomitant]
     Active Substance: BISMUTH SUBSALICYLATE\GLYCERIN\PROPYLENE GLYCOL
     Dosage: EVERY NIGHT AT BED TIME
     Dates: start: 2019
  5. OXERVATE [Suspect]
     Active Substance: CENEGERMIN-BKBJ
     Indication: NEUROTROPHIC KERATOPATHY
     Route: 047
     Dates: start: 20200729
  6. BETEN [Concomitant]
     Dates: start: 2019

REACTIONS (5)
  - Hospitalisation [Unknown]
  - Therapy interrupted [Unknown]
  - Lacrimation increased [Unknown]
  - Eye pain [Not Recovered/Not Resolved]
  - Ocular discomfort [Recovering/Resolving]

NARRATIVE: CASE EVENT DATE: 20200731
